FAERS Safety Report 5533185-4 (Version None)
Quarter: 2007Q4

REPORT INFORMATION
  Report Type: 
  Country: None (occurrence: None)
  Receive Date: 20071120
  Receipt Date: 20070813
  Transmission Date: 20080405
  Serious: No
  Sender: FDA-Public Use
  Company Number: WAES 0701USA02116

PATIENT
  Age: 81 Year
  Sex: Female

DRUGS (6)
  1. JANUVIA [Suspect]
     Indication: TYPE 2 DIABETES MELLITUS
     Dosage: 100 MG/DAILY/PO
     Route: 048
     Dates: start: 20061201
  2. DIOVAN [Concomitant]
  3. SYNTHROID [Concomitant]
  4. ASPIRIN [Concomitant]
  5. GLIPIZIDE [Concomitant]
  6. METOPROLOL [Concomitant]

REACTIONS (4)
  - BLOOD GLUCOSE INCREASED [None]
  - BRONCHITIS [None]
  - FLATULENCE [None]
  - NAUSEA [None]
